FAERS Safety Report 19814412 (Version 1)
Quarter: 2021Q3

REPORT INFORMATION
  Report Type: Report from Study
  Country: DK (occurrence: DK)
  Receive Date: 20210909
  Receipt Date: 20210909
  Transmission Date: 20211014
  Serious: Yes (Life-Threatening, Hospitalization)
  Sender: FDA-Public Use
  Company Number: DK-TEVA-2021-DK-1949992

PATIENT
  Age: 71 Year
  Sex: Male

DRUGS (7)
  1. LIDOCAINE. [Suspect]
     Active Substance: LIDOCAINE
     Indication: VENTRICULAR TACHYCARDIA
     Route: 065
  2. METOPROLOL. [Suspect]
     Active Substance: METOPROLOL
     Indication: VENTRICULAR TACHYCARDIA
     Route: 065
  3. AMIODARONE [Suspect]
     Active Substance: AMIODARONE
     Indication: VENTRICULAR TACHYCARDIA
     Route: 065
  4. PROPOFOL. [Suspect]
     Active Substance: PROPOFOL
     Indication: VENTRICULAR TACHYCARDIA
     Dosage: FOR 5 DAYS
     Route: 041
  5. FENTANYL. [Suspect]
     Active Substance: FENTANYL
     Indication: VENTRICULAR TACHYCARDIA
     Dosage: FOR 5 DAYS
     Route: 041
  6. FENTANYL. [Suspect]
     Active Substance: FENTANYL
     Indication: SEDATIVE THERAPY
  7. PROPOFOL. [Suspect]
     Active Substance: PROPOFOL
     Indication: SEDATIVE THERAPY

REACTIONS (2)
  - Hypotension [Unknown]
  - Drug ineffective [Unknown]
